FAERS Safety Report 14414311 (Version 1)
Quarter: 2018Q1

REPORT INFORMATION
  Report Type: Spontaneous
  Country: IT (occurrence: IT)
  Receive Date: 20180120
  Receipt Date: 20180120
  Transmission Date: 20180509
  Serious: Yes (Hospitalization, Disabling, Other)
  Sender: FDA-Public Use
  Company Number: IT-SUN PHARMACEUTICAL INDUSTRIES LTD-2018RR-160528

PATIENT
  Age: 16 Year
  Sex: Female

DRUGS (6)
  1. LORMETAZEPAM [Interacting]
     Active Substance: LORMETAZEPAM
     Indication: INTENTIONAL SELF-INJURY
     Dosage: 10 MG, ONCE/SINGLE (TOTAL) ; IN TOTAL
     Route: 048
     Dates: start: 20170905, end: 20170905
  2. VENLAFAXINE [Interacting]
     Active Substance: VENLAFAXINE HYDROCHLORIDE
     Indication: INTENTIONAL SELF-INJURY
     Dosage: 150 MG, ONCE/SINGLE (TOTAL) ; IN TOTAL
     Route: 048
     Dates: start: 20170905, end: 20170905
  3. TRIAZOLAM. [Interacting]
     Active Substance: TRIAZOLAM
     Indication: INTENTIONAL SELF-INJURY
     Dosage: 2.5 MG, ONCE/SINGLE (TOTAL) ; IN TOTAL
     Route: 048
     Dates: start: 20170905, end: 20170905
  4. LORAZEPAM. [Suspect]
     Active Substance: LORAZEPAM
     Indication: INTENTIONAL SELF-INJURY
     Dosage: 75 MG, ONCE/SINGLE ; IN TOTAL
     Route: 048
     Dates: start: 20170905, end: 20170905
  5. RISPERDAL [Interacting]
     Active Substance: RISPERIDONE
     Indication: INTENTIONAL SELF-INJURY
     Dosage: 75 ML, ONCE/SINGLE (TOTAL) ; IN TOTAL
     Route: 048
     Dates: start: 20170905, end: 20170905
  6. DEPAKIN 200 MG/ML SOLUZIONE ORALE [Concomitant]
     Indication: PRODUCT USED FOR UNKNOWN INDICATION
     Dosage: ()
     Route: 048

REACTIONS (12)
  - Drug abuse [Unknown]
  - Concomitant disease aggravated [Unknown]
  - Intellectual disability [Unknown]
  - Alcohol interaction [Unknown]
  - Attention deficit/hyperactivity disorder [Unknown]
  - Intentional product misuse [Unknown]
  - Intentional self-injury [Unknown]
  - Loss of consciousness [Unknown]
  - Contraindicated product administered [Unknown]
  - Sopor [Unknown]
  - Aphasia [Unknown]
  - Overdose [Unknown]

NARRATIVE: CASE EVENT DATE: 20170905
